FAERS Safety Report 5281012-5 (Version None)
Quarter: 2007Q1

REPORT INFORMATION
  Report Type: 
  Country: None (occurrence: None)
  Receive Date: 20061229
  Receipt Date: 20060810
  Transmission Date: 20070707
  Serious: Yes (Other)
  Sender: FDA-Public Use
  Company Number: 2006UW15943

PATIENT
  Age: 68 Year
  Sex: Female
  Weight: 77.11 kg

DRUGS (1)
  1. CRESTOR [Suspect]
     Indication: BLOOD CHOLESTEROL INCREASED
     Dosage: 10 MG PO
     Route: 048
     Dates: start: 20060803

REACTIONS (3)
  - ABDOMINAL PAIN [None]
  - VAGINAL BURNING SENSATION [None]
  - VAGINAL PAIN [None]
